FAERS Safety Report 5428798-4 (Version None)
Quarter: 2007Q3

REPORT INFORMATION
  Report Type: 
  Country: None (occurrence: None)
  Receive Date: 20070829
  Receipt Date: 20070430
  Transmission Date: 20080115
  Serious: No
  Sender: FDA-Public Use
  Company Number: A0649332A

PATIENT
  Age: 76 Year
  Sex: Female

DRUGS (4)
  1. ZOVIRAX [Suspect]
     Route: 061
     Dates: start: 20070427
  2. SYNTHROID [Concomitant]
     Route: 048
  3. XANAX [Concomitant]
     Route: 048
  4. ACIPHEX [Concomitant]

REACTIONS (3)
  - ERYTHEMA [None]
  - LIP DRY [None]
  - LIP SWELLING [None]
